FAERS Safety Report 5676991-8 (Version None)
Quarter: 2008Q1

REPORT INFORMATION
  Report Type: 
  Country: None (occurrence: None)
  Receive Date: 20080324
  Receipt Date: 20080310
  Transmission Date: 20080703
  Serious: Yes (Other)
  Sender: FDA-Public Use
  Company Number: PL-AMGEN-UK264228

PATIENT
  Sex: Female

DRUGS (1)
  1. ARANESP [Suspect]
     Indication: RENAL FAILURE CHRONIC
     Dates: start: 20050601

REACTIONS (1)
  - HAEMOLYTIC ANAEMIA [None]
